FAERS Safety Report 19425081 (Version 1)
Quarter: 2021Q2

REPORT INFORMATION
  Report Type: Spontaneous
  Country: US (occurrence: US)
  Receive Date: 20210617
  Receipt Date: 20210617
  Transmission Date: 20210717
  Serious: No
  Sender: FDA-Public Use
  Company Number: US-TEVA-2021-US-1918159

PATIENT
  Age: 33 Year
  Sex: Female

DRUGS (1)
  1. EMTRICITABINE W/TENOFOVIR [Suspect]
     Active Substance: EMTRICITABINE\TENOFOVIR DISOPROXIL
     Route: 065
     Dates: start: 2021

REACTIONS (4)
  - Arthralgia [Not Recovered/Not Resolved]
  - Musculoskeletal discomfort [Not Recovered/Not Resolved]
  - Muscle discomfort [Not Recovered/Not Resolved]
  - Myalgia [Not Recovered/Not Resolved]

NARRATIVE: CASE EVENT DATE: 2021
